FAERS Safety Report 6963333-0 (Version None)
Quarter: 2010Q3

REPORT INFORMATION
  Report Type: 
  Country: None (occurrence: None)
  Receive Date: 20100902
  Receipt Date: 20100827
  Transmission Date: 20110219
  Serious: Yes (Hospitalization)
  Sender: FDA-Public Use
  Company Number: CA-ABBOTT-10P-028-0667301-00

PATIENT
  Age: 39 Year
  Sex: Male

DRUGS (9)
  1. LOPINAVIR/RITONAVIR [Suspect]
     Indication: HIV INFECTION
  2. TENOFOVIR [Interacting]
     Indication: HIV INFECTION
  3. EMTRICITABINE [Interacting]
     Indication: HIV INFECTION
  4. VINBLASTINE SULFATE [Interacting]
     Indication: HODGKIN'S DISEASE
  5. TRIMETHOPRIM [Concomitant]
     Indication: ANTIFUNGAL PROPHYLAXIS
  6. GRANULOCYTE COLONY STIMULATING FACTOR [Concomitant]
     Indication: PROPHYLAXIS
  7. DOXORUBICIN HCL [Concomitant]
     Indication: HODGKIN'S DISEASE
  8. BLEOMYCIN SULFATE [Concomitant]
     Indication: HODGKIN'S DISEASE
  9. DACARBAZINE [Concomitant]
     Indication: HODGKIN'S DISEASE

REACTIONS (2)
  - DRUG INTERACTION [None]
  - NEUROTOXICITY [None]
